FAERS Safety Report 6131861-6 (Version None)
Quarter: 2009Q1

REPORT INFORMATION
  Report Type: 
  Country: None (occurrence: None)
  Receive Date: 20090323
  Receipt Date: 20090305
  Transmission Date: 20090719
  Serious: Yes (Hospitalization)
  Sender: FDA-Public Use
  Company Number: APP200900119

PATIENT
  Age: 36 Year
  Sex: Female

DRUGS (4)
  1. SENSORCAINE [Suspect]
     Indication: ANALGESIA
     Dosage: 10 ML, EPIDURAL
     Route: 008
  2. LEVOBUPIVACAINE (LEVOBUPIVACAINE) [Suspect]
     Indication: EPIDURAL ANAESTHESIA
     Dosage: 5 ML, INTRATHECAL, 15 ML, 0.07%, 0.10% OR 0.15% PER BISHOP'S SCORE
     Route: 037
  3. SUFENTANIL CITRATE [Suspect]
     Indication: ANALGESIA
     Dosage: 5 MCG
  4. SUFENTANIL CITRATE [Suspect]
     Indication: EPIDURAL ANAESTHESIA
     Dosage: 5 MCG

REACTIONS (7)
  - ANAESTHETIC COMPLICATION [None]
  - CONVULSION [None]
  - DRUG EXPOSURE DURING PREGNANCY [None]
  - EYELID PTOSIS [None]
  - INTRACRANIAL HYPOTENSION [None]
  - PUPILS UNEQUAL [None]
  - SUBDURAL HAEMATOMA [None]
